FAERS Safety Report 11706125 (Version 4)
Quarter: 2016Q1

REPORT INFORMATION
  Report Type: Report from Study
  Country: BR (occurrence: BR)
  Receive Date: 20151106
  Receipt Date: 20160121
  Transmission Date: 20160525
  Serious: Yes (Death, Life-Threatening, Hospitalization, Other)
  Sender: FDA-Public Use
  Company Number: BR-ALEXION PHARMACEUTICALS INC-A201504364

PATIENT
  Age: 18 Year
  Sex: Female

DRUGS (2)
  1. SOLIRIS [Suspect]
     Active Substance: ECULIZUMAB
     Indication: HAEMOLYTIC URAEMIC SYNDROME
     Dosage: 900 MG, UNK
     Route: 042
     Dates: start: 20150905
  2. SOLIRIS [Suspect]
     Active Substance: ECULIZUMAB
     Dosage: 1200 MG, Q2W
     Route: 042
     Dates: start: 20151007, end: 20151120

REACTIONS (12)
  - Cardiac arrest [Fatal]
  - Hyperthermia [Unknown]
  - Nosocomial infection [Unknown]
  - Hypertension [Not Recovered/Not Resolved]
  - Post procedural haemorrhage [Recovered/Resolved]
  - Seizure [Recovered/Resolved]
  - Brain injury [Fatal]
  - Respiratory arrest [Fatal]
  - Acute pulmonary oedema [Unknown]
  - Brain death [Fatal]
  - Hypertensive encephalopathy [Unknown]
  - Renal impairment [Not Recovered/Not Resolved]

NARRATIVE: CASE EVENT DATE: 20151015
